FAERS Safety Report 9092620 (Version 2)
Quarter: 2013Q1

REPORT INFORMATION
  Report Type: Spontaneous
  Country: FR (occurrence: FR)
  Receive Date: 20130201
  Receipt Date: 20130225
  Transmission Date: 20140127
  Serious: Yes (Hospitalization)
  Sender: FDA-Public Use
  Company Number: FR-009507513-1301FRA010756

PATIENT
  Age: 70 Year
  Sex: Female
  Weight: 63 kg

DRUGS (1)
  1. ORGARAN [Suspect]
     Indication: HEPARIN-INDUCED THROMBOCYTOPENIA
     Dosage: 200 IU, QH
     Route: 042
     Dates: start: 20120716, end: 20120730

REACTIONS (2)
  - Shock haemorrhagic [Recovered/Resolved]
  - Retroperitoneal haematoma [Recovered/Resolved]
